FAERS Safety Report 7433955-1 (Version None)
Quarter: 2011Q2

REPORT INFORMATION
  Report Type: 
  Country: None (occurrence: None)
  Receive Date: 20110418
  Receipt Date: 20110404
  Transmission Date: 20111010
  Serious: Yes (Hospitalization)
  Sender: FDA-Public Use
  Company Number: HEXX-NO-1102S-0001

PATIENT
  Age: 92 Year
  Sex: Male

DRUGS (2)
  1. FINASTERIDE [Concomitant]
  2. CYSVIEW KIT [Suspect]
     Indication: BLADDER CANCER
     Dosage: SINGLE DOSE, INTRAVESICAL
     Route: 043
     Dates: start: 20110211, end: 20110211

REACTIONS (3)
  - UROSEPSIS [None]
  - SEPSIS [None]
  - DIZZINESS POSTURAL [None]
